FAERS Safety Report 20795221 (Version 2)
Quarter: 2022Q2

REPORT INFORMATION
  Report Type: Spontaneous
  Country: US (occurrence: US)
  Receive Date: 20220506
  Receipt Date: 20220506
  Transmission Date: 20220721
  Serious: No
  Sender: FDA-Public Use
  Company Number: US-PFIZER INC-202200322382

PATIENT

DRUGS (1)
  1. CYTOMEL [Suspect]
     Active Substance: LIOTHYRONINE SODIUM
     Indication: Hypothyroidism
     Dosage: 42.5 UG, DAILY (TAKE 6 AND A HALF PILLS IN THE MORNING AND 2 MID-DAY FOR A TOTAL OF 42.5 MCG DAILY)

REACTIONS (1)
  - Off label use [Unknown]
